FAERS Safety Report 25955313 (Version 1)
Quarter: 2025Q4

REPORT INFORMATION
  Report Type: Report from Study
  Country: US (occurrence: US)
  Receive Date: 20251024
  Receipt Date: 20251024
  Transmission Date: 20260118
  Serious: Yes (Hospitalization, Other)
  Sender: IPSEN BIOPHARMACEUTICALS, INC.
  Company Number: US-IPSEN Group, Research and Development-2023-25114

PATIENT
  Age: 15 Year
  Sex: Male

DRUGS (26)
  1. ONIVYDE [Suspect]
     Active Substance: IRINOTECAN HYDROCHLORIDE
     Indication: Neuroblastoma
     Dosage: 200 MG/M2, DAY 1, PER CYCLE QD
     Dates: start: 20231019
  2. ONIVYDE [Suspect]
     Active Substance: IRINOTECAN HYDROCHLORIDE
     Dosage: 258 MG, ONCE
     Dates: start: 20231109
  3. TEMOZOLOMIDE [Suspect]
     Active Substance: TEMOZOLOMIDE
     Indication: Neuroblastoma
     Dosage: 100 MCG/M2, DAYS 1-5, PER CYCLE, QD
     Dates: start: 20231023
  4. TEMOZOLOMIDE [Suspect]
     Active Substance: TEMOZOLOMIDE
     Dosage: QD (D1-5)
     Dates: start: 20231113
  5. HYDROCORTISONE [Concomitant]
     Active Substance: HYDROCORTISONE
     Indication: Adrenal insufficiency
     Dosage: 5 MG AM/ 2.5 MG PM
  6. SEPTRA [Concomitant]
     Active Substance: SULFAMETHOXAZOLE\TRIMETHOPRIM
     Indication: Pneumocystis jirovecii pneumonia
     Dosage: 600 MG/400 MG, SAT/SUN ONLY
     Route: 048
     Dates: start: 20220701
  7. NABILONE [Concomitant]
     Active Substance: NABILONE
     Indication: Prophylaxis of nausea and vomiting
     Dosage: 0.5 MG, BID
     Route: 048
     Dates: start: 20231019
  8. PEG FLAKES [Concomitant]
     Indication: Constipation
     Dosage: 17 G, OD
     Route: 048
     Dates: start: 20220701
  9. CEFIXIME [Concomitant]
     Active Substance: CEFIXIME
     Indication: Diarrhoea
     Dosage: 300 MG, OD
     Route: 048
     Dates: start: 20231019
  10. CEFIXIME [Concomitant]
     Active Substance: CEFIXIME
     Dosage: 300 MG, OD
     Dates: start: 20231107
  11. CETIRIZINE HYDROCHLORIDE [Concomitant]
     Active Substance: CETIRIZINE HYDROCHLORIDE
     Indication: Urticaria
     Dosage: 10 MG, BID (PRN)
     Route: 048
     Dates: start: 20231026
  12. DIPHENHYDRAMINE [Concomitant]
     Active Substance: DIPHENHYDRAMINE
     Indication: Prophylaxis
     Dosage: 37.50 MG/ML, 1 TIME
     Dates: start: 20231026, end: 20231026
  13. LOPERAMIDE [Concomitant]
     Active Substance: LOPERAMIDE
     Indication: Diarrhoea
     Dosage: 2 MG, PRN
  14. GRANISETRON [Concomitant]
     Active Substance: GRANISETRON
     Indication: Nausea
     Dosage: 1.5 MG, (PRN)
     Route: 048
  15. DIMENHYDRINATE [Concomitant]
     Active Substance: DIMENHYDRINATE
     Indication: Nausea
     Dosage: 50 MG, PRN
     Route: 048
  16. DEXAMETHASONE [Concomitant]
     Active Substance: DEXAMETHASONE
     Indication: Prophylaxis
     Dosage: 4 MG, 1 TIME
     Dates: start: 20231019, end: 20231019
  17. DEXAMETHASONE [Concomitant]
     Active Substance: DEXAMETHASONE
     Dosage: 4 MG, BID
     Route: 048
     Dates: start: 20231019, end: 20231019
  18. PEG- FILGRASTIM [Concomitant]
     Indication: Neutropenia
     Dosage: 4 MG, 1 TIME
     Dates: start: 20231025, end: 20231025
  19. PEG- FILGRASTIM [Concomitant]
     Route: 058
     Dates: start: 20231115, end: 20231115
  20. METHADONE [Concomitant]
     Active Substance: METHADONE HYDROCHLORIDE
     Indication: Pain
     Dosage: 7.5 MG, PRN
     Dates: start: 20230201
  21. GABAPENTIN [Concomitant]
     Active Substance: GABAPENTIN
     Indication: Pain
     Dosage: 300 MG, PRN
     Dates: start: 20210113
  22. LANSOPRAZOLE [Concomitant]
     Active Substance: LANSOPRAZOLE
     Indication: Prophylaxis
     Dosage: 15 MG, QD
     Dates: start: 20220701
  23. SERTRALINE [Concomitant]
     Active Substance: SERTRALINE HYDROCHLORIDE
     Indication: Depression
     Dosage: 150 MG, QD
  24. VANCOMYCIN [Concomitant]
     Active Substance: VANCOMYCIN
     Indication: Antibiotic therapy
     Dosage: 125 MG, QD
     Dates: start: 20231109
  25. CALCIUM [Concomitant]
     Active Substance: CALCIUM
     Indication: Prophylaxis
     Dosage: 500 MG, QD
  26. VITAMIN D [Concomitant]
     Active Substance: VITAMIN D NOS
     Indication: Prophylaxis
     Dosage: 1000 IU, QD

REACTIONS (2)
  - Clostridium difficile colitis [Recovered/Resolved]
  - COVID-19 [Recovered/Resolved]

NARRATIVE: CASE EVENT DATE: 20231028
